FAERS Safety Report 18474483 (Version 2)
Quarter: 2020Q4

REPORT INFORMATION
  Report Type: Report from Study
  Country: ES (occurrence: ES)
  Receive Date: 20201106
  Receipt Date: 20201219
  Transmission Date: 20210114
  Serious: Yes (Hospitalization)
  Sender: FDA-Public Use
  Company Number: ES-ROCHE-2707064

PATIENT
  Age: 76 Year
  Sex: Male
  Weight: 80 kg

DRUGS (7)
  1. DEXAMETASONE [Concomitant]
     Active Substance: DEXAMETHASONE
     Dates: start: 20200925, end: 20201009
  2. NORADRENALINE [Concomitant]
     Active Substance: NOREPINEPHRINE
     Dates: start: 20201010, end: 20201021
  3. PANTOPRAZOL [Concomitant]
     Active Substance: PANTOPRAZOLE SODIUM
     Dates: start: 20201004
  4. ENOXAPARINE SODIQUE [Concomitant]
     Active Substance: ENOXAPARIN SODIUM
     Indication: PULMONARY EMBOLISM
     Dates: start: 20201008
  5. MEROPENEM. [Concomitant]
     Active Substance: MEROPENEM
     Dates: start: 20201008, end: 20201012
  6. LINEZOLID. [Concomitant]
     Active Substance: LINEZOLID
     Dates: start: 20201008, end: 20201012
  7. TOCILIZUMAB. [Suspect]
     Active Substance: TOCILIZUMAB
     Indication: COVID-19 PNEUMONIA
     Route: 042
     Dates: start: 20200925

REACTIONS (1)
  - Acute respiratory distress syndrome [Recovered/Resolved]

NARRATIVE: CASE EVENT DATE: 20201008
